FAERS Safety Report 23796954 (Version 1)
Quarter: 2024Q2

REPORT INFORMATION
  Report Type: Spontaneous
  Country: US (occurrence: US)
  Receive Date: 20240430
  Receipt Date: 20240430
  Transmission Date: 20240716
  Serious: No
  Sender: FDA-Public Use
  Company Number: US-VIIV HEALTHCARE LIMITED-US2024AMR050316

PATIENT
  Sex: Male

DRUGS (3)
  1. RILPIVIRINE [Suspect]
     Active Substance: RILPIVIRINE
     Indication: HIV infection
     Dosage: UNK MO CAB 600 MG (3 ML) AND RPV 900 MG (3ML) 1MONTH AFTER INITIAL DOSE THEN EVERY 2MONTH THEREAFTER
     Route: 030
     Dates: start: 202311
  2. CABOTEGRAVIR [Suspect]
     Active Substance: CABOTEGRAVIR
     Indication: HIV infection
     Dosage: UNK MO CAB 600 MG (3 ML) AND RPV 900 MG (3ML) 1MONTH AFTER INITIAL DOSE THEN EVERY 2MONTH THEREAFTER
     Route: 030
     Dates: start: 202311
  3. BIKTARVY [Concomitant]
     Active Substance: BICTEGRAVIR SODIUM\EMTRICITABINE\TENOFOVIR ALAFENAMIDE FUMARATE
     Indication: HIV infection
     Dosage: UNK

REACTIONS (1)
  - Musculoskeletal stiffness [Unknown]
